FAERS Safety Report 7383808-2 (Version None)
Quarter: 2011Q1

REPORT INFORMATION
  Report Type: 
  Country: None (occurrence: None)
  Receive Date: 20110323
  Receipt Date: 20110315
  Transmission Date: 20110831
  Serious: Yes (Other)
  Sender: FDA-Public Use
  Company Number: 2011SP012094

PATIENT
  Age: 23 Year
  Sex: Female

DRUGS (6)
  1. MARVELON 28 (DESOGESTREL/ETHINYLESTRADIOL / 00570801/) [Suspect]
     Indication: CONTRACEPTION
     Dosage: 1 DF; QD; PO
     Route: 048
     Dates: start: 20100101
  2. SYMICORT (BUDESONIDE / FORMOTEROL FUMARATE HYDRATE) [Concomitant]
  3. PREDNISOLONE [Suspect]
     Indication: PRODUCT USED FOR UNKNOWN INDICATION
  4. MUCOSOLVAN /00546002/ [Concomitant]
  5. THEO-DUR [Concomitant]
  6. CLARITHROMYCIN [Concomitant]

REACTIONS (1)
  - ASTHMA [None]
